FAERS Safety Report 15255814 (Version 1)
Quarter: 2018Q3

REPORT INFORMATION
  Report Type: Spontaneous
  Country: MX (occurrence: MX)
  Receive Date: 20180808
  Receipt Date: 20180808
  Transmission Date: 20181010
  Serious: Yes (Hospitalization)
  Sender: FDA-Public Use
  Company Number: MX-PFIZER INC-2018314991

PATIENT
  Age: 60 Year
  Sex: Male

DRUGS (1)
  1. SUTENT [Suspect]
     Active Substance: SUNITINIB MALATE
     Indication: RENAL CELL CARCINOMA
     Dosage: 50 MG, CYCLIC (4?2 SCHEME)

REACTIONS (7)
  - Vision blurred [Recovered/Resolved]
  - Nervous system disorder [Recovered/Resolved]
  - Hallucination [Recovered/Resolved]
  - Haematoma [Recovered/Resolved]
  - Contusion [Recovered/Resolved]
  - Disturbance in attention [Recovered/Resolved]
  - Thrombocytopenic purpura [Recovered/Resolved]
